FAERS Safety Report 17061178 (Version 3)
Quarter: 2019Q4

REPORT INFORMATION
  Report Type: Report from Study
  Country: TW (occurrence: TW)
  Receive Date: 20191121
  Receipt Date: 20191227
  Transmission Date: 20200122
  Serious: Yes (Hospitalization)
  Sender: FDA-Public Use
  Company Number: TW-EISAI MEDICAL RESEARCH-EC-2019-065570

PATIENT
  Age: 51 Year
  Sex: Male
  Weight: 58.6 kg

DRUGS (4)
  1. ERIBULIN [Suspect]
     Active Substance: ERIBULIN
     Route: 042
     Dates: start: 20191129
  2. LENVATINIB [Suspect]
     Active Substance: LENVATINIB
     Indication: MIXED-TYPE LIPOSARCOMA
     Route: 048
     Dates: start: 20190920, end: 20191111
  3. LENVATINIB [Suspect]
     Active Substance: LENVATINIB
     Route: 048
     Dates: start: 20191129
  4. ERIBULIN [Suspect]
     Active Substance: ERIBULIN
     Indication: MIXED-TYPE LIPOSARCOMA
     Route: 042
     Dates: start: 20190920, end: 20191018

REACTIONS (1)
  - Dermatitis [Recovered/Resolved]

NARRATIVE: CASE EVENT DATE: 20191111
